FAERS Safety Report 4654719-8 (Version None)
Quarter: 2005Q2

REPORT INFORMATION
  Report Type: 
  Country: None (occurrence: None)
  Receive Date: 20050506
  Receipt Date: 20050418
  Transmission Date: 20051028
  Serious: Yes (Hospitalization)
  Sender: FDA-Public Use
  Company Number: 200513225US

PATIENT
  Sex: Female
  Weight: 88.6 kg

DRUGS (9)
  1. APIDRA [Suspect]
     Indication: DIABETES MELLITUS
     Dosage: DOSE: UNK
     Route: 058
     Dates: start: 20050331
  2. LANTUS [Suspect]
     Indication: DIABETES MELLITUS
     Route: 058
     Dates: start: 20050331
  3. LOTENSIN [Concomitant]
     Indication: HYPERTENSION
     Route: 048
     Dates: start: 19840101
  4. ZOCOR [Concomitant]
     Indication: BLOOD CHOLESTEROL INCREASED
     Route: 048
     Dates: start: 19940101
  5. HYDROCHLOROTHIAZIDE [Concomitant]
     Indication: HYPERTENSION
     Route: 048
     Dates: start: 19840101
  6. ASPIRIN [Concomitant]
     Indication: PROPHYLAXIS
     Route: 048
     Dates: start: 20020101
  7. TIMOPTIC [Concomitant]
     Indication: GLAUCOMA
     Dosage: DOSE: 0.5% (1 DROP)
     Route: 047
     Dates: start: 19970101
  8. ALPHAGAN [Concomitant]
     Indication: GLAUCOMA
     Dosage: DOSE: 15% (1 DROP)
     Route: 047
     Dates: start: 19970101
  9. LUMIGAN [Concomitant]
     Indication: GLAUCOMA
     Dosage: DOSE: 0.3% (1 DROP)
     Route: 047
     Dates: start: 19970101

REACTIONS (6)
  - ERYTHEMA [None]
  - FEELING HOT [None]
  - INJECTION SITE ERYTHEMA [None]
  - INJECTION SITE OEDEMA [None]
  - LOCALISED INFECTION [None]
  - SWELLING [None]
